FAERS Safety Report 6991409-0 (Version None)
Quarter: 2010Q3

REPORT INFORMATION
  Report Type: 
  Country: None (occurrence: None)
  Receive Date: 20100916
  Receipt Date: 20090827
  Transmission Date: 20110219
  Serious: No
  Sender: FDA-Public Use
  Company Number: US-WYE-H10754809

PATIENT
  Sex: Male
  Weight: 65.38 kg

DRUGS (1)
  1. PRISTIQ [Suspect]
     Indication: MAJOR DEPRESSION
     Route: 048
     Dates: start: 20090730, end: 20090814

REACTIONS (2)
  - CHEST DISCOMFORT [None]
  - PALPITATIONS [None]
